FAERS Safety Report 14769745 (Version 1)
Quarter: 2018Q2

REPORT INFORMATION
  Report Type: Spontaneous
  Country: US (occurrence: US)
  Receive Date: 20180417
  Receipt Date: 20180417
  Transmission Date: 20180711
  Serious: No
  Sender: FDA-Public Use
  Company Number: US-GLAXOSMITHKLINE-US2018065933

PATIENT
  Age: 68 Year
  Sex: Female

DRUGS (18)
  1. OXYCODONE EXTENDED RELEASE [Concomitant]
     Active Substance: OXYCODONE
  2. CELEXA [Concomitant]
     Active Substance: CITALOPRAM HYDROBROMIDE
  3. GABAPENTIN. [Concomitant]
     Active Substance: GABAPENTIN
  4. PROTONIX [Concomitant]
     Active Substance: PANTOPRAZOLE SODIUM
  5. LASIX [Concomitant]
     Active Substance: FUROSEMIDE
  6. OXYGEN. [Concomitant]
     Active Substance: OXYGEN
  7. SEROQUEL [Concomitant]
     Active Substance: QUETIAPINE FUMARATE
  8. XANAX [Concomitant]
     Active Substance: ALPRAZOLAM
  9. BELSOMRA [Concomitant]
     Active Substance: SUVOREXANT
  10. BUSPAR [Concomitant]
     Active Substance: BUSPIRONE HYDROCHLORIDE
  11. PIRFENIDONE. [Concomitant]
     Active Substance: PIRFENIDONE
  12. ANORO ELLIPTA [Suspect]
     Active Substance: UMECLIDINIUM BROMIDE\VILANTEROL TRIFENATATE
     Indication: EMPHYSEMA
     Dosage: 1 PUFF(S), 1D
     Route: 055
     Dates: start: 201802, end: 201803
  13. MOBIC [Concomitant]
     Active Substance: MELOXICAM
  14. ANORO ELLIPTA [Suspect]
     Active Substance: UMECLIDINIUM BROMIDE\VILANTEROL TRIFENATATE
     Indication: IDIOPATHIC PULMONARY FIBROSIS
     Dosage: 1 PUFF(S), QD
     Route: 055
     Dates: start: 20180414
  15. AMBIEN CR [Concomitant]
     Active Substance: ZOLPIDEM TARTRATE
  16. BRILINTA [Concomitant]
     Active Substance: TICAGRELOR
  17. METOPROLOL. [Concomitant]
     Active Substance: METOPROLOL
  18. ROPINIROLE. [Concomitant]
     Active Substance: ROPINIROLE

REACTIONS (5)
  - Product use in unapproved indication [Not Recovered/Not Resolved]
  - Insomnia [Not Recovered/Not Resolved]
  - Dysphonia [Not Recovered/Not Resolved]
  - Chest discomfort [Not Recovered/Not Resolved]
  - Product storage error [Unknown]

NARRATIVE: CASE EVENT DATE: 2018
